FAERS Safety Report 13465718 (Version 4)
Quarter: 2017Q2

REPORT INFORMATION
  Report Type: Report from Study
  Country: DK (occurrence: DK)
  Receive Date: 20170421
  Receipt Date: 20170517
  Transmission Date: 20170830
  Serious: Yes (Hospitalization)
  Sender: FDA-Public Use
  Company Number: DK-BIOGEN-2009BI032787

PATIENT
  Age: 50 Year
  Sex: Female

DRUGS (2)
  1. TYSABRI [Suspect]
     Active Substance: NATALIZUMAB
     Route: 042
     Dates: end: 20080211
  2. TYSABRI [Suspect]
     Active Substance: NATALIZUMAB
     Indication: MULTIPLE SCLEROSIS
     Route: 042
     Dates: start: 20070208, end: 20080117

REACTIONS (1)
  - Invasive ductal breast carcinoma [Not Recovered/Not Resolved]

NARRATIVE: CASE EVENT DATE: 20080130
